FAERS Safety Report 5946585-5 (Version None)
Quarter: 2008Q4

REPORT INFORMATION
  Report Type: 
  Country: None (occurrence: None)
  Receive Date: 20081110
  Receipt Date: 20081110
  Transmission Date: 20090506
  Serious: Yes (Death, Hospitalization)
  Sender: FDA-Public Use
  Company Number: US-JNJFOC-20081007478

PATIENT
  Sex: Male
  Weight: 88 kg

DRUGS (17)
  1. INFLIXIMAB, RECOMBINANT [Suspect]
     Dosage: WEEK 22
     Route: 042
  2. INFLIXIMAB, RECOMBINANT [Suspect]
     Indication: HEPATITIS C
     Route: 042
  3. PEG-INTRON [Suspect]
     Indication: HEPATITIS C
     Route: 058
  4. REBETOL [Suspect]
     Indication: HEPATITIS C
     Route: 048
  5. BACTRIM [Concomitant]
     Indication: INFLUENZA LIKE ILLNESS
     Dosage: 800/160 MG
     Route: 048
  6. CEPHALEXIN [Concomitant]
     Indication: INFLUENZA LIKE ILLNESS
     Route: 048
  7. MOTRIN [Concomitant]
     Indication: INFLUENZA LIKE ILLNESS
  8. CHLORASEPTIC THROAT SPRAY [Concomitant]
     Indication: OROPHARYNGEAL PAIN
     Route: 061
  9. SPORTSCREME [Concomitant]
     Indication: INFLUENZA LIKE ILLNESS
     Route: 061
  10. SPORTSCREME [Concomitant]
     Indication: PAIN
     Dosage: DOSE: ^10^
     Route: 061
  11. ADVIL [Concomitant]
     Indication: PAIN
     Route: 048
  12. ISONIAZID [Concomitant]
     Indication: ANTIBIOTIC PROPHYLAXIS
     Route: 048
  13. VITAMIN B6 [Concomitant]
     Indication: ANTIBIOTIC PROPHYLAXIS
     Route: 048
  14. LEXAPRO [Concomitant]
     Indication: AGITATION
     Route: 048
  15. PHENERGAN HCL [Concomitant]
     Indication: NAUSEA
     Route: 048
  16. PEPTO BISMOL [Concomitant]
     Indication: DIARRHOEA
     Dosage: 1-2 CAPSULES, AS NEEDED
     Route: 048
  17. NEUPOGEN [Concomitant]
     Indication: NEUTROPENIA
     Route: 058

REACTIONS (3)
  - LIVER DISORDER [None]
  - PNEUMONIA [None]
  - RESPIRATORY FAILURE [None]
